FAERS Safety Report 24892843 (Version 2)
Quarter: 2025Q4

REPORT INFORMATION
  Report Type: Spontaneous
  Country: JP (occurrence: JP)
  Receive Date: 20250128
  Receipt Date: 20251211
  Transmission Date: 20260118
  Serious: Yes (Hospitalization, Other)
  Sender: TEVA
  Company Number: JP-TEVA-2023-JP-2885817

PATIENT
  Sex: Male

DRUGS (1)
  1. AZILECT [Suspect]
     Active Substance: RASAGILINE MESYLATE
     Indication: Parkinson^s disease
     Route: 048

REACTIONS (3)
  - Syncope [Recovering/Resolving]
  - Fall [Unknown]
  - Orthostatic hypotension [Recovering/Resolving]
